FAERS Safety Report 8433471-4 (Version None)
Quarter: 2012Q2

REPORT INFORMATION
  Report Type: 
  Country: None (occurrence: None)
  Receive Date: 20120613
  Receipt Date: 20120603
  Transmission Date: 20120825
  Serious: Yes (Death, Hospitalization)
  Sender: FDA-Public Use
  Company Number: CA-JNJFOC-20120519600

PATIENT
  Sex: Female

DRUGS (3)
  1. REMICADE [Suspect]
     Indication: CROHN'S DISEASE
     Route: 042
     Dates: start: 20100701, end: 20120401
  2. PREDNISONE TAB [Concomitant]
     Route: 065
  3. IMURAN [Concomitant]
     Route: 065

REACTIONS (6)
  - HERNIA [None]
  - WOUND DEHISCENCE [None]
  - SEPSIS [None]
  - ORGANISING PNEUMONIA [None]
  - ABSCESS INTESTINAL [None]
  - POLYMYALGIA RHEUMATICA [None]
